FAERS Safety Report 19007263 (Version 1)
Quarter: 2021Q1

REPORT INFORMATION
  Report Type: Spontaneous
  Country: US (occurrence: US)
  Receive Date: 20210315
  Receipt Date: 20210315
  Transmission Date: 20210420
  Serious: Yes (Life-Threatening, Disabling, Other)
  Sender: FDA-Public Use
  Company Number: None

PATIENT
  Age: 63 Year
  Sex: Female

DRUGS (1)
  1. REPATHA [Suspect]
     Active Substance: EVOLOCUMAB
     Dates: start: 20210215

REACTIONS (29)
  - Upper-airway cough syndrome [None]
  - Oropharyngeal pain [None]
  - Hypoaesthesia [None]
  - Paraesthesia [None]
  - Joint swelling [None]
  - Blood pressure decreased [None]
  - Ear congestion [None]
  - Scar [None]
  - Rash pruritic [None]
  - Headache [None]
  - Cough [None]
  - Hypophagia [None]
  - Vulvovaginal swelling [None]
  - Rhinorrhoea [None]
  - Peripheral swelling [None]
  - Hypoaesthesia oral [None]
  - Rash [None]
  - Pruritus [None]
  - Urine odour abnormal [None]
  - Asthma [None]
  - Nasal congestion [None]
  - Ear pain [None]
  - Sneezing [None]
  - Skin disorder [None]
  - Lacrimation increased [None]
  - Blood pressure increased [None]
  - Stomatitis [None]
  - Dysuria [None]
  - Bladder discomfort [None]

NARRATIVE: CASE EVENT DATE: 20210215
